FAERS Safety Report 4475956-1 (Version None)
Quarter: 2004Q4

REPORT INFORMATION
  Report Type: 
  Country: None (occurrence: None)
  Receive Date: 20041012
  Receipt Date: 20041007
  Transmission Date: 20050328
  Serious: Yes (Hospitalization)
  Sender: FDA-Public Use
  Company Number: 2004-09-0550

PATIENT
  Age: 47 Year
  Sex: Male

DRUGS (8)
  1. PEG-INTRON [Suspect]
     Indication: HEPATITIS C
  2. REBETOL [Suspect]
     Indication: HEPATITIS C
     Dosage: ORAL
     Route: 048
  3. PAXIL [Concomitant]
  4. DIOVAN [Concomitant]
  5. AMARYL [Concomitant]
  6. NIACIN [Concomitant]
  7. VIREAD [Concomitant]
  8. UNSPECIFIED THERAPEUTIC AGENT 'ABOTEX' [Concomitant]

REACTIONS (5)
  - DECREASED APPETITE [None]
  - DIARRHOEA [None]
  - INFLUENZA LIKE ILLNESS [None]
  - PAIN [None]
  - RENAL FAILURE [None]
